FAERS Safety Report 4908941-3 (Version None)
Quarter: 2006Q1

REPORT INFORMATION
  Report Type: 
  Country: None (occurrence: None)
  Receive Date: 20060209
  Receipt Date: 20060202
  Transmission Date: 20060701
  Serious: Yes (Other)
  Sender: FDA-Public Use
  Company Number: 144475USA

PATIENT
  Age: 54 Year
  Sex: Female

DRUGS (4)
  1. COPAXONE [Suspect]
     Indication: MULTIPLE SCLEROSIS
     Dates: start: 20010228
  2. SYNTHROID [Concomitant]
  3. DYAZIDE [Concomitant]
  4. PREMPRO [Concomitant]

REACTIONS (2)
  - CARTILAGE INJURY [None]
  - SOFT TISSUE DISORDER [None]
